FAERS Safety Report 23139352 (Version 1)
Quarter: 2023Q4

REPORT INFORMATION
  Report Type: Spontaneous
  Country: US (occurrence: None)
  Receive Date: 20231102
  Receipt Date: 20231102
  Transmission Date: 20240109
  Serious: Yes (Hospitalization)
  Sender: FDA-Public Use
  Company Number: None

PATIENT
  Age: 63 Year
  Sex: Male

DRUGS (2)
  1. STELARA [Suspect]
     Active Substance: USTEKINUMAB
  2. PREDNISONE [Concomitant]

REACTIONS (4)
  - Jugular vein thrombosis [None]
  - Giant cell arteritis [None]
  - Ankylosing spondylitis [None]
  - Flatulence [None]
